FAERS Safety Report 8068967-0 (Version None)
Quarter: 2012Q1

REPORT INFORMATION
  Report Type: 
  Country: None (occurrence: None)
  Receive Date: 20120118
  Receipt Date: 20120109
  Transmission Date: 20120608
  Serious: Yes (Hospitalization)
  Sender: FDA-Public Use
  Company Number: 2010003329

PATIENT
  Age: 50 Year
  Sex: Female
  Weight: 44 kg

DRUGS (11)
  1. ERLOTINIB HYDROCHLORIDE [Suspect]
     Indication: NON-SMALL CELL LUNG CANCER STAGE IIIB
     Dosage: 150 MG, UID/QD, ORAL
     Route: 048
     Dates: start: 20100902
  2. ERLOTINIB HYDROCHLORIDE [Suspect]
     Indication: NON-SMALL CELL LUNG CANCER STAGE IV
     Dosage: 150 MG, UID/QD, ORAL
     Route: 048
     Dates: start: 20100902
  3. CARBOPLATIN [Suspect]
     Indication: NON-SMALL CELL LUNG CANCER STAGE IV
     Dosage: 410 MG, TOTAL DOSE, IV NOS; 1.7 G, TOTAL DOSE, IV NOS
     Route: 042
     Dates: start: 20100803
  4. CARBOPLATIN [Suspect]
     Indication: NON-SMALL CELL LUNG CANCER STAGE IIIB
     Dosage: 410 MG, TOTAL DOSE, IV NOS; 1.7 G, TOTAL DOSE, IV NOS
     Route: 042
     Dates: start: 20100803
  5. CARBOPLATIN [Suspect]
  6. METOCLOPRAMIDE [Concomitant]
  7. FERROUS SULFATE TAB [Concomitant]
  8. MULTIVITAMIN [Concomitant]
  9. GEMCITABINE [Suspect]
     Indication: NON-SMALL CELL LUNG CANCER STAGE IIIB
     Dosage: 1.7 G, TOTAL DOSE, IV NOS
     Route: 042
     Dates: start: 20100803
  10. GEMCITABINE [Suspect]
     Indication: NON-SMALL CELL LUNG CANCER STAGE IV
     Dosage: 1.7 G, TOTAL DOSE, IV NOS
     Route: 042
     Dates: start: 20100803
  11. AMLODIPINE [Concomitant]

REACTIONS (2)
  - ANAEMIA [None]
  - THROMBOCYTOPENIA [None]
